FAERS Safety Report 21093210 (Version 1)
Quarter: 2022Q3

REPORT INFORMATION
  Report Type: Report from Study
  Country: US (occurrence: US)
  Receive Date: 20220718
  Receipt Date: 20220718
  Transmission Date: 20221026
  Serious: Yes (Hospitalization)
  Sender: FDA-Public Use
  Company Number: US-GILEAD-2022-0589331

PATIENT
  Age: 18 Year
  Sex: Female

DRUGS (12)
  1. AZTREONAM LYSINE [Suspect]
     Active Substance: AZTREONAM LYSINE
     Indication: Cystic fibrosis
     Dosage: 75 MG, TID FOR 28 DAYS ON AND 28 DAYS OFF
     Route: 055
  2. TOBI [Concomitant]
     Active Substance: TOBRAMYCIN
  3. VIMPAT [Concomitant]
     Active Substance: LACOSAMIDE
  4. PHENOBARBITAL [Concomitant]
     Active Substance: PHENOBARBITAL
  5. DIASTAT ACUDIAL [Concomitant]
     Active Substance: DIAZEPAM
  6. BACLOFEN [Concomitant]
     Active Substance: BACLOFEN
  7. FAMOTIDINE [Concomitant]
     Active Substance: FAMOTIDINE
  8. CLONAZEPAM [Concomitant]
     Active Substance: CLONAZEPAM
  9. OMEPRAZOLE [Concomitant]
     Active Substance: OMEPRAZOLE
  10. MIRALAX [Concomitant]
     Active Substance: POLYETHYLENE GLYCOL 3350
  11. CULTURELLE [Concomitant]
     Active Substance: LACTOBACILLUS RHAMNOSUS
  12. ZONISAMIDE [Concomitant]
     Active Substance: ZONISAMIDE

REACTIONS (1)
  - Dyspnoea [Unknown]

NARRATIVE: CASE EVENT DATE: 20220601
